FAERS Safety Report 5876441-2 (Version None)
Quarter: 2008Q3

REPORT INFORMATION
  Report Type: 
  Country: None (occurrence: None)
  Receive Date: 20080910
  Receipt Date: 20080903
  Transmission Date: 20090109
  Serious: Yes (Other)
  Sender: FDA-Public Use
  Company Number: US-WATSON-2008-05351

PATIENT
  Age: 3 Year
  Sex: Male

DRUGS (1)
  1. TRIAMCINOLONE ACETONIDE (WATSON LABORATORIES) [Suspect]
     Indication: RETINAL DETACHMENT
     Dosage: UNK

REACTIONS (2)
  - RETINAL DETACHMENT [None]
  - RETINOPATHY PROLIFERATIVE [None]
